FAERS Safety Report 11616253 (Version 1)
Quarter: 2015Q4

REPORT INFORMATION
  Report Type: Report from Study
  Country: US (occurrence: US)
  Receive Date: 20151009
  Receipt Date: 20151009
  Transmission Date: 20160304
  Serious: Yes (Hospitalization, Other)
  Sender: FDA-Public Use
  Company Number: US-TAKEDA-2015MPI006537

PATIENT
  Age: 49 Year
  Sex: Female

DRUGS (3)
  1. VELCADE [Suspect]
     Active Substance: BORTEZOMIB
     Dosage: 3.33 MG, UNK
     Route: 058
     Dates: start: 20150929
  2. VELCADE [Suspect]
     Active Substance: BORTEZOMIB
     Dosage: 3.34 MG, UNK
     Route: 058
     Dates: start: 20151002
  3. VELCADE [Suspect]
     Active Substance: BORTEZOMIB
     Indication: PLASMA CELL MYELOMA
     Dosage: 3.3 MG, UNK
     Route: 058
     Dates: start: 20150922

REACTIONS (2)
  - Renal failure [Unknown]
  - Laboratory test abnormal [Unknown]

NARRATIVE: CASE EVENT DATE: 20150918
